FAERS Safety Report 9819132 (Version 1)
Quarter: 2014Q1

REPORT INFORMATION
  Report Type: Report from Study
  Country: BE (occurrence: BE)
  Receive Date: 20140115
  Receipt Date: 20140115
  Transmission Date: 20141002
  Serious: Yes (Hospitalization)
  Sender: FDA-Public Use
  Company Number: BE-BRISTOL-MYERS SQUIBB COMPANY-19987221

PATIENT
  Age: 78 Year
  Sex: Female

DRUGS (18)
  1. ABATACEPT [Suspect]
     Indication: RHEUMATOID ARTHRITIS
     Route: 042
     Dates: start: 20090930
  2. ACLASTA [Concomitant]
  3. MEDROL [Concomitant]
     Dosage: 1 DF = 2 MG/J.
  4. SOTALEX [Concomitant]
     Dosage: 1 DF = 40MG 2X/J
  5. SINTROM [Concomitant]
     Dosage: 1 DF = 1 MG/J
  6. ASAFLOW [Concomitant]
     Dosage: 1 DF = 80MG 1CO.
  7. AMLOR [Concomitant]
     Dosage: 1 DF = 5MG 1CO.
  8. COVERSYL [Concomitant]
     Dosage: 1 DF = 10MG 1/2CO ET?ALSO 4MG 1*/JOUR
  9. LASIX [Concomitant]
     Dosage: 1 DF = 40 MG 1/2CO/1JOUR SUR 2.
  10. ELTHYRONE [Concomitant]
     Dosage: 1 DF = 75 MICROGRAM/J
  11. ACETYLCYSTEINE [Concomitant]
     Dosage: 1 DF = 600MG 1X/J
  12. AZOPT [Concomitant]
     Dosage: 1 DF = I GTTE DANS CHEQUE CELL LE MATIN
  13. D-CURE [Concomitant]
     Dosage: 1 DF = IX/MOIS
  14. MOVICOL [Concomitant]
  15. CALCIUM CARBONATE [Concomitant]
     Dosage: 1 DF = 500 2SACHETS/J
  16. LOSFERRON [Concomitant]
     Dosage: 1 DF = 80MG 1X/J
  17. DUOVENT [Concomitant]
     Dosage: 1 DF = 1X/J
  18. VFEND [Concomitant]
     Dosage: 1 DF = 1X/J

REACTIONS (1)
  - Medical device change [Unknown]
